FAERS Safety Report 8906238 (Version 1)
Quarter: 2012Q4

REPORT INFORMATION
  Report Type: Spontaneous
  Country: US (occurrence: None)
  Receive Date: 20121112
  Receipt Date: 20121112
  Transmission Date: 20130627
  Serious: Yes (Hospitalization, Other)
  Sender: FDA-Public Use
  Company Number: None

PATIENT
  Age: 24 Year
  Sex: Female
  Weight: 77.11 kg

DRUGS (3)
  1. LAMOTRIGINE [Suspect]
     Indication: BIPOLAR DISORDER
     Route: 048
     Dates: start: 20120825, end: 20121002
  2. LAMOTRIGINE [Suspect]
     Indication: BIPOLAR DISORDER
  3. LAMOTRIGINE [Suspect]
     Indication: BIPOLAR DISORDER

REACTIONS (8)
  - Eye pain [None]
  - Photophobia [None]
  - Impaired work ability [None]
  - Impaired driving ability [None]
  - Visual impairment [None]
  - Impulsive behaviour [None]
  - Suicidal ideation [None]
  - Mydriasis [None]
